FAERS Safety Report 5195526-X (Version None)
Quarter: 2007Q1

REPORT INFORMATION
  Report Type: 
  Country: None (occurrence: None)
  Receive Date: 20070102
  Receipt Date: 20061222
  Transmission Date: 20070707
  Serious: Yes (Hospitalization)
  Sender: FDA-Public Use
  Company Number: FR-JNJFOC-20061205855

PATIENT
  Age: 52 Year
  Sex: Female

DRUGS (5)
  1. TAVANIC [Suspect]
     Indication: BRONCHOPNEUMONIA
     Route: 048
     Dates: start: 20061019, end: 20061024
  2. BRONCHODERMINE [Concomitant]
     Indication: BRONCHOPNEUMONIA
     Route: 048
  3. CORTANCYL [Concomitant]
     Indication: BRONCHOPNEUMONIA
     Route: 048
  4. PNEUMOREL [Concomitant]
     Indication: BRONCHOPNEUMONIA
     Route: 048
  5. RHINOFLUIMUCIL [Concomitant]
     Indication: BRONCHOPNEUMONIA
     Route: 065

REACTIONS (3)
  - CHOLESTASIS [None]
  - HEPATIC ENZYME INCREASED [None]
  - LIVER INJURY [None]
